FAERS Safety Report 23655922 (Version 2)
Quarter: 2024Q2

REPORT INFORMATION
  Report Type: Spontaneous
  Country: DE (occurrence: DE)
  Receive Date: 20240321
  Receipt Date: 20240410
  Transmission Date: 20240716
  Serious: Yes (Other)
  Sender: FDA-Public Use
  Company Number: None

PATIENT
  Age: 48 Year
  Sex: Male
  Weight: 76 kg

DRUGS (27)
  1. TRAMADOL HYDROCHLORIDE [Suspect]
     Active Substance: TRAMADOL HYDROCHLORIDE
     Indication: Myalgia
     Dosage: UNK
     Route: 048
     Dates: start: 20230401, end: 20240306
  2. TRAMADOL HYDROCHLORIDE [Suspect]
     Active Substance: TRAMADOL HYDROCHLORIDE
     Indication: Arthralgia
  3. TRAMADOL HYDROCHLORIDE [Suspect]
     Active Substance: TRAMADOL HYDROCHLORIDE
     Indication: Pain
  4. TRAMADOL HYDROCHLORIDE [Suspect]
     Active Substance: TRAMADOL HYDROCHLORIDE
     Indication: Tendon pain
  5. TRAMADOL HYDROCHLORIDE [Suspect]
     Active Substance: TRAMADOL HYDROCHLORIDE
     Indication: Neuralgia
  6. TRAMADOL HYDROCHLORIDE [Suspect]
     Active Substance: TRAMADOL HYDROCHLORIDE
     Indication: Bone pain
  7. TRAMADOL HYDROCHLORIDE [Suspect]
     Active Substance: TRAMADOL HYDROCHLORIDE
     Indication: Lung disorder
  8. TRAMADOL HYDROCHLORIDE [Suspect]
     Active Substance: TRAMADOL HYDROCHLORIDE
     Indication: Spinal pain
  9. TRAMADOL HYDROCHLORIDE [Suspect]
     Active Substance: TRAMADOL HYDROCHLORIDE
     Indication: Inflammation
  10. IBUPROFEN [Suspect]
     Active Substance: IBUPROFEN
     Indication: Arthralgia
     Dosage: UNK
     Route: 065
     Dates: start: 20230401, end: 20240306
  11. IBUPROFEN [Suspect]
     Active Substance: IBUPROFEN
     Indication: Pain
  12. IBUPROFEN [Suspect]
     Active Substance: IBUPROFEN
     Indication: Myalgia
  13. IBUPROFEN [Suspect]
     Active Substance: IBUPROFEN
     Indication: Bone pain
  14. IBUPROFEN [Suspect]
     Active Substance: IBUPROFEN
     Indication: Spinal pain
  15. IBUPROFEN [Suspect]
     Active Substance: IBUPROFEN
     Indication: Tendon pain
  16. IBUPROFEN [Suspect]
     Active Substance: IBUPROFEN
     Indication: Neuralgia
  17. IBUPROFEN [Suspect]
     Active Substance: IBUPROFEN
     Indication: Inflammation
  18. IBUPROFEN [Suspect]
     Active Substance: IBUPROFEN
     Indication: Lung disorder
  19. METAMIZOLE [Suspect]
     Active Substance: METAMIZOLE
     Indication: Inflammation
     Dosage: UNK
     Route: 065
     Dates: start: 20230401, end: 20240306
  20. METAMIZOLE [Suspect]
     Active Substance: METAMIZOLE
     Indication: Neuralgia
  21. METAMIZOLE [Suspect]
     Active Substance: METAMIZOLE
     Indication: Arthralgia
  22. METAMIZOLE [Suspect]
     Active Substance: METAMIZOLE
     Indication: Tendon pain
  23. METAMIZOLE [Suspect]
     Active Substance: METAMIZOLE
     Indication: Bone pain
  24. METAMIZOLE [Suspect]
     Active Substance: METAMIZOLE
     Indication: Spinal pain
  25. METAMIZOLE [Suspect]
     Active Substance: METAMIZOLE
     Indication: Pain
  26. METAMIZOLE [Suspect]
     Active Substance: METAMIZOLE
     Indication: Lung disorder
  27. METAMIZOLE [Suspect]
     Active Substance: METAMIZOLE
     Indication: Myalgia

REACTIONS (31)
  - Neuropathy peripheral [Recovered/Resolved with Sequelae]
  - Neuralgia [Unknown]
  - Nervous system disorder [Recovered/Resolved with Sequelae]
  - Asthenia [Recovered/Resolved with Sequelae]
  - Asthma [Recovered/Resolved with Sequelae]
  - Pain [Recovered/Resolved with Sequelae]
  - Asthenia [Unknown]
  - Visual impairment [Unknown]
  - Disturbance in attention [Recovered/Resolved with Sequelae]
  - Dyspnoea [Recovered/Resolved with Sequelae]
  - Headache [Recovered/Resolved with Sequelae]
  - Muscular weakness [Recovered/Resolved with Sequelae]
  - Thinking abnormal [Unknown]
  - Pain in jaw [Unknown]
  - Lymphadenopathy [Recovered/Resolved with Sequelae]
  - Arthralgia [Unknown]
  - Apathy [Unknown]
  - Inflammation [Not Recovered/Not Resolved]
  - Arthralgia [Recovered/Resolved with Sequelae]
  - Hypotonia [Recovered/Resolved with Sequelae]
  - Epistaxis [Recovered/Resolved with Sequelae]
  - Memory impairment [Recovered/Resolved with Sequelae]
  - Lung disorder [Recovered/Resolved with Sequelae]
  - Myalgia [Recovered/Resolved with Sequelae]
  - Malaise [Recovered/Resolved with Sequelae]
  - Sleep disorder [Recovered/Resolved with Sequelae]
  - Nerve injury [Recovered/Resolved with Sequelae]
  - Pain in extremity [Unknown]
  - Pain in extremity [Recovered/Resolved with Sequelae]
  - Bone pain [Recovered/Resolved with Sequelae]
  - Myalgia [Recovered/Resolved with Sequelae]

NARRATIVE: CASE EVENT DATE: 20230401
